FAERS Safety Report 12493973 (Version 3)
Quarter: 2016Q3

REPORT INFORMATION
  Report Type: Spontaneous
  Country: US (occurrence: US)
  Receive Date: 20160623
  Receipt Date: 20160727
  Transmission Date: 20161109
  Serious: No
  Sender: FDA-Public Use
  Company Number: US-ACTELION-A-NJ2016-137801

PATIENT
  Age: 51 Year
  Sex: Male

DRUGS (7)
  1. FLUOXETINE [Concomitant]
     Active Substance: FLUOXETINE HYDROCHLORIDE
  2. BUSPIRONE [Concomitant]
     Active Substance: BUSPIRONE HYDROCHLORIDE
  3. ADCIRCA [Concomitant]
     Active Substance: TADALAFIL
  4. METFORMIN [Concomitant]
     Active Substance: METFORMIN HYDROCHLORIDE
  5. DIVALPROEX [Concomitant]
     Active Substance: DIVALPROEX SODIUM
  6. OPSUMIT [Suspect]
     Active Substance: MACITENTAN
     Indication: PULMONARY ARTERIAL HYPERTENSION
     Dosage: 10 MG, QD
     Route: 048
     Dates: start: 20160304
  7. UPTRAVI [Suspect]
     Active Substance: SELEXIPAG
     Indication: PULMONARY ARTERIAL HYPERTENSION
     Dosage: 600 MCG, BID
     Route: 048
     Dates: start: 20160531

REACTIONS (2)
  - Nausea [Recovering/Resolving]
  - Pain in jaw [Recovering/Resolving]

NARRATIVE: CASE EVENT DATE: 20160603
